FAERS Safety Report 4746058-1 (Version None)
Quarter: 2005Q3

REPORT INFORMATION
  Report Type: 
  Country: None (occurrence: None)
  Receive Date: 20050816
  Receipt Date: 20050805
  Transmission Date: 20060218
  Serious: Yes (Hospitalization)
  Sender: FDA-Public Use
  Company Number: US-JNJFOC-20050501265

PATIENT
  Sex: Female
  Weight: 80.51 kg

DRUGS (9)
  1. ELMIRON [Suspect]
     Route: 048
  2. ELMIRON [Suspect]
     Indication: CYSTITIS INTERSTITIAL
     Route: 048
  3. ELMIRON [Suspect]
     Route: 043
  4. HEPARIN [Suspect]
     Indication: CYSTITIS INTERSTITIAL
     Dosage: 40,000 UNITS, 1X/WK
     Route: 043
  5. SYNTHROID [Concomitant]
     Indication: HYPOTHYROIDISM
  6. VERAPAMIL [Concomitant]
     Indication: HYPERTENSION
     Route: 048
  7. MACRODANTIN [Concomitant]
  8. URIMAX [Concomitant]
  9. ELAVIL [Concomitant]
     Indication: CYSTITIS INTERSTITIAL

REACTIONS (8)
  - HEPATITIS [None]
  - INCREASED TENDENCY TO BRUISE [None]
  - INFLAMMATORY BOWEL DISEASE [None]
  - PAIN [None]
  - PERITONEAL ADHESIONS [None]
  - PLATELET COUNT DECREASED [None]
  - WEIGHT INCREASED [None]
  - WHITE BLOOD CELL COUNT DECREASED [None]
